FAERS Safety Report 20684564 (Version 1)
Quarter: 2022Q2

REPORT INFORMATION
  Report Type: Spontaneous
  Country: HR (occurrence: None)
  Receive Date: 20220407
  Receipt Date: 20220407
  Transmission Date: 20220720
  Serious: Yes (Other)
  Sender: FDA-Public Use
  Company Number: None

PATIENT
  Age: 87 Year
  Sex: Female

DRUGS (3)
  1. EUTHYROX [Suspect]
     Active Substance: LEVOTHYROXINE SODIUM
     Indication: Product used for unknown indication
     Route: 048
     Dates: start: 20211207, end: 20211207
  2. LORAZEPAM [Suspect]
     Active Substance: LORAZEPAM
     Indication: Product used for unknown indication
     Route: 048
     Dates: start: 20211207, end: 20211207
  3. TARKA [Suspect]
     Active Substance: TRANDOLAPRIL\VERAPAMIL HYDROCHLORIDE
     Indication: Product used for unknown indication
     Dosage: 1 DF EQUAL TO 180 MG VERAPAMIL HYDROCHLORIDE PLUS 2 MG TRANDOLAPRIL
     Route: 048
     Dates: start: 20211207, end: 20211207

REACTIONS (6)
  - Electrocardiogram QRS complex prolonged [Unknown]
  - Hypertension [Unknown]
  - Blood pressure systolic increased [Unknown]
  - Accidental overdose [Unknown]
  - Confusional state [Unknown]
  - Palpitations [Unknown]

NARRATIVE: CASE EVENT DATE: 20211207
